FAERS Safety Report 10420789 (Version 1)
Quarter: 2014Q3

REPORT INFORMATION
  Report Type: Spontaneous
  Country: US (occurrence: None)
  Receive Date: 20140829
  Receipt Date: 20140829
  Transmission Date: 20150326
  Serious: Yes (Hospitalization)
  Sender: FDA-Public Use
  Company Number: None

PATIENT
  Age: 61 Year
  Sex: Male
  Weight: 99 kg

DRUGS (12)
  1. FISH OIL (500MG DHA/EPA) [Concomitant]
  2. ENOXAPARIN [Concomitant]
     Active Substance: ENOXAPARIN
  3. ALBUTEROL 100/IPRATRO [Concomitant]
  4. BUDESONIDE 80/FORMOTER [Concomitant]
  5. WARFARIN NA (GOLDEN STATE) [Concomitant]
  6. AMIODARONE [Suspect]
     Active Substance: AMIODARONE
     Indication: ATRIAL FLUTTER
     Route: 048
     Dates: start: 20121023, end: 20140312
  7. MAGNESIUM OXIDE. [Concomitant]
     Active Substance: MAGNESIUM OXIDE
  8. MELOXICAM. [Concomitant]
     Active Substance: MELOXICAM
  9. METOPROLOL TARTRATE. [Concomitant]
     Active Substance: METOPROLOL TARTRATE
  10. LISINOPRIL. [Concomitant]
     Active Substance: LISINOPRIL
  11. CEFUROXIME AXETIL. [Concomitant]
     Active Substance: CEFUROXIME AXETIL
  12. DILTIAZEM (INWOOD) [Concomitant]

REACTIONS (1)
  - Alveolitis allergic [None]

NARRATIVE: CASE EVENT DATE: 20140320
